FAERS Safety Report 16311298 (Version 3)
Quarter: 2019Q2

REPORT INFORMATION
  Report Type: Report from Study
  Country: FR (occurrence: FR)
  Receive Date: 20190514
  Receipt Date: 20190614
  Transmission Date: 20190711
  Serious: No
  Sender: FDA-Public Use
  Company Number: PHHY2019FR108540

PATIENT
  Age: 70 Year
  Sex: Male

DRUGS (1)
  1. ENTRESTO [Suspect]
     Active Substance: SACUBITRIL\VALSARTAN
     Indication: CARDIAC FAILURE
     Dosage: UNK
     Route: 065

REACTIONS (6)
  - Malaise [Unknown]
  - Balance disorder [Unknown]
  - Arthralgia [Unknown]
  - Depressed mood [Unknown]
  - Sleep disorder [Unknown]
  - Vertigo [Unknown]
